FAERS Safety Report 13927505 (Version 2)
Quarter: 2017Q3

REPORT INFORMATION
  Report Type: Report from Study
  Country: IT (occurrence: IT)
  Receive Date: 20170901
  Receipt Date: 20170906
  Transmission Date: 20171127
  Serious: Yes (Other)
  Sender: FDA-Public Use
  Company Number: IT-TEVA-801791ACC

PATIENT
  Age: 34 Year
  Sex: Female

DRUGS (4)
  1. LETROZOLE. [Suspect]
     Active Substance: LETROZOLE
     Indication: OVULATION INDUCTION
     Dosage: 5 MG/DAY, LATER 2.5 MG/DAY
     Route: 065
  2. CETRORELIX [Concomitant]
     Active Substance: CETRORELIX
     Indication: OVULATION INDUCTION
     Route: 065
  3. TRIPTORELIN [Suspect]
     Active Substance: TRIPTORELIN
     Indication: OVULATION INDUCTION
     Dosage: .1 MILLIGRAM DAILY; 0.1MG/DAY
     Route: 065
  4. UROFOLLITROPIN [Concomitant]
     Active Substance: UROFOLLITROPIN
     Indication: OVULATION INDUCTION
     Dosage: 150 IU (INTERNATIONAL UNIT) DAILY;
     Route: 065

REACTIONS (1)
  - Progesterone increased [Unknown]
